APPROVED DRUG PRODUCT: PITRESSIN TANNATE
Active Ingredient: VASOPRESSIN TANNATE
Strength: 5PRESSOR UNITS/ML **Federal Register determination that product was not discontinued or withdrawn for safety or effectiveness reasons**
Dosage Form/Route: INJECTABLE;INJECTION
Application: N003402 | Product #001
Applicant: PARKE DAVIS DIV WARNER LAMBERT CO
Approved: Approved Prior to Jan 1, 1982 | RLD: Yes | RS: No | Type: DISCN